FAERS Safety Report 10551770 (Version 2)
Quarter: 2014Q4

REPORT INFORMATION
  Report Type: Report from Study
  Country: FR (occurrence: FR)
  Receive Date: 20141029
  Receipt Date: 20141029
  Transmission Date: 20150529
  Serious: Yes (Hospitalization, Other)
  Sender: FDA-Public Use
  Company Number: FR-PFIZER INC-2013315992

PATIENT
  Age: 59 Year
  Sex: Female
  Weight: 60 kg

DRUGS (12)
  1. ZARZIO [Concomitant]
     Active Substance: FILGRASTIM
     Indication: BONE MARROW FAILURE
     Dosage: 2 INJECTIONS PER DAY
  2. SOLU-MEDROL [Concomitant]
     Active Substance: METHYLPREDNISOLONE SODIUM SUCCINATE
     Indication: BONE MARROW FAILURE
     Dosage: 2 MG/KG, DAILY
     Dates: start: 20130426
  3. ZARZIO [Concomitant]
     Active Substance: FILGRASTIM
     Dosage: PROGRESSIVE DECREASE
     Dates: end: 20130829
  4. ATGAM [Suspect]
     Active Substance: EQUINE THYMOCYTE IMMUNE GLOBULIN
     Indication: BONE MARROW FAILURE
     Dosage: 40 MG/KG, DAILY
     Route: 042
     Dates: start: 20130426, end: 20130429
  5. MORPHINE [Concomitant]
     Active Substance: MORPHINE
     Indication: PAIN IN EXTREMITY
  6. NEORAL [Concomitant]
     Active Substance: CYCLOSPORINE
     Indication: BONE MARROW FAILURE
     Dosage: 5 MG/KG, DAILY (IN 2 INTAKES PER DAY)
     Dates: start: 20130426
  7. SOLUPRED [Concomitant]
     Active Substance: PREDNISOLONE
     Indication: BONE MARROW FAILURE
     Dosage: 40 MG, DAILY
  8. NEORAL [Concomitant]
     Active Substance: CYCLOSPORINE
     Dosage: 130 MG, 2X/DAY
  9. POLARAMINE [Concomitant]
     Active Substance: DEXCHLORPHENIRAMINE MALEATE
     Indication: PREMEDICATION
  10. PARACETAMOL [Concomitant]
     Active Substance: ACETAMINOPHEN
     Indication: PREMEDICATION
  11. SOLU-MEDROL [Concomitant]
     Active Substance: METHYLPREDNISOLONE SODIUM SUCCINATE
     Dosage: PROGRESSIVE DECREASE OF THE DOSE
  12. HYDROCORTISONE. [Concomitant]
     Active Substance: HYDROCORTISONE
     Indication: PREMEDICATION

REACTIONS (4)
  - Clostridium difficile infection [Recovered/Resolved]
  - Deafness [Recovering/Resolving]
  - Hypertension [Recovering/Resolving]
  - Sepsis [Recovered/Resolved]

NARRATIVE: CASE EVENT DATE: 20130717
